FAERS Safety Report 19854806 (Version 1)
Quarter: 2021Q3

REPORT INFORMATION
  Report Type: Spontaneous
  Country: US (occurrence: US)
  Receive Date: 20210917
  Receipt Date: 20210917
  Transmission Date: 20211014
  Serious: No
  Sender: FDA-Public Use
  Company Number: None

PATIENT
  Age: 63 Year
  Sex: Female
  Weight: 70.7 kg

DRUGS (2)
  1. PACLITAXEL. [Suspect]
     Active Substance: PACLITAXEL
     Indication: BREAST CANCER
     Dosage: ?          OTHER FREQUENCY:WEEKLY;?
     Route: 041
     Dates: start: 20210917, end: 20210917
  2. PACLITAXEL. [Concomitant]
     Active Substance: PACLITAXEL
     Dates: start: 20210917, end: 20210917

REACTIONS (5)
  - Hypertension [None]
  - Infusion related reaction [None]
  - Tachycardia [None]
  - Flushing [None]
  - Oxygen saturation decreased [None]

NARRATIVE: CASE EVENT DATE: 20210917
